FAERS Safety Report 18325668 (Version 1)
Quarter: 2020Q3

REPORT INFORMATION
  Report Type: Spontaneous
  Country: FR (occurrence: FR)
  Receive Date: 20200929
  Receipt Date: 20200929
  Transmission Date: 20201103
  Serious: Yes (Other)
  Sender: FDA-Public Use
  Company Number: NVSC2020FR260622

PATIENT
  Age: 33 Year
  Sex: Male

DRUGS (2)
  1. SKENAN [Suspect]
     Active Substance: MORPHINE SULFATE
     Indication: DRUG USE DISORDER
     Dosage: 1 DF, PRN (AS NECESSARY)
     Route: 042
     Dates: start: 2020
  2. RITALINE [Suspect]
     Active Substance: METHYLPHENIDATE HYDROCHLORIDE
     Indication: DRUG USE DISORDER
     Dosage: 1 DF, PRN (AS NECESSARY)
     Route: 042
     Dates: start: 2020

REACTIONS (1)
  - Drug use disorder [Not Recovered/Not Resolved]

NARRATIVE: CASE EVENT DATE: 2020
